FAERS Safety Report 10710427 (Version 1)
Quarter: 2015Q1

REPORT INFORMATION
  Report Type: Report from Study
  Country: JP (occurrence: None)
  Receive Date: 20150112
  Receipt Date: 20150112
  Transmission Date: 20150721
  Serious: Yes (Other)
  Sender: FDA-Public Use
  Company Number: 2009JP006400

PATIENT
  Age: 3 Decade
  Sex: Female
  Weight: 50 kg

DRUGS (29)
  1. WARFARIN (WARFARIN POTASSIUM) [Concomitant]
  2. NEUROVITAN (OCTOTIAMINE, PYRIDOXINE, CYANOCOBALAMIN, RIBOFLAVIN) [Concomitant]
  3. OLMETEC (OLMESARTAN MEDOXOMIL) [Concomitant]
     Active Substance: OLMESARTAN MEDOXOMIL
  4. MEILAX (ETHYL LOFLAZEPATE) [Concomitant]
  5. DEPAS (ETIZOLAM) [Concomitant]
  6. PREDNISOLONE. [Suspect]
     Active Substance: PREDNISOLONE
     Indication: LUPUS NEPHRITIS
     Route: 048
     Dates: end: 20070930
  7. TAKEPRON (LANSOPRAZOLE) [Concomitant]
     Active Substance: LANSOPRAZOLE
  8. ROHYPNOL (FLUNITRAZEPAM) [Concomitant]
     Active Substance: FLUNITRAZEPAM
  9. ALLEGRA (FEXOFENADINE HYDROCHLORIDE) [Concomitant]
  10. WYPAX (LORAZEPAM) [Concomitant]
  11. BAYASPIRIN (ACETYLSALICYLIC ACID) [Concomitant]
  12. TETRAMIDE (MIANSERIN HYDROCHLORIDE) [Concomitant]
  13. EURODIN (ESTAZOLAM) [Concomitant]
  14. DEPAKENE-R (SODIUM VALPROATE) [Concomitant]
  15. LIPITOR [Concomitant]
     Active Substance: ATORVASTATIN CALCIUM
  16. PROGRAF [Suspect]
     Active Substance: TACROLIMUS\TACROLIMUS ANHYDROUS
     Indication: LUPUS NEPHRITIS
     Route: 048
     Dates: start: 20070806
  17. ONEALFA [Concomitant]
     Active Substance: ALFACALCIDOL
  18. HALCION (TRIAZOLAM) [Concomitant]
  19. JZOLOFT (SERTRALINE HYDROCHLORIDE) [Concomitant]
  20. AMLODIN (AMLODIPINE BESILATE) [Concomitant]
  21. ACECOL (TEMOCAPRIL HYDROCHLORIDE) [Concomitant]
  22. BONALON (ALENDRONATE SODIUM) [Concomitant]
  23. RESLIN (TRAZODONE HYDROCHLORIDE) [Concomitant]
  24. RIVOTRIL [Concomitant]
     Active Substance: CLONAZEPAM
  25. NELBON (NITRAZEPAM) [Concomitant]
  26. BAKTAR (SULFAMETHOXAZOLE_TRIMETHOPRIM) [Concomitant]
  27. SELBEX (TEPRENONE) [Concomitant]
     Active Substance: TEPRENONE
  28. NEO-MINOPHAGEN C (MONOAMMONIUM GLUCYRRHIZINATE_GLYCINE_L-CYSTEINE COMBINED) [Concomitant]
  29. MYSLEE (ZOLPIDEM) [Concomitant]
     Active Substance: ZOLPIDEM\ZOLPIDEM TARTRATE

REACTIONS (7)
  - Aspartate aminotransferase increased [None]
  - Liver disorder [None]
  - Alanine aminotransferase increased [None]
  - Condition aggravated [None]
  - Retinal haemorrhage [None]
  - Insomnia [None]
  - Depression [None]

NARRATIVE: CASE EVENT DATE: 20090615
